FAERS Safety Report 5597333-2 (Version None)
Quarter: 2008Q1

REPORT INFORMATION
  Report Type: 
  Country: None (occurrence: None)
  Receive Date: 20080121
  Receipt Date: 20080107
  Transmission Date: 20080703
  Serious: Yes (Other)
  Sender: FDA-Public Use
  Company Number: US-BAYER-200711971BCC

PATIENT
  Age: 85 Year
  Sex: Female
  Weight: 49 kg

DRUGS (2)
  1. ASPIRIN [Suspect]
     Indication: ISCHAEMIC HEART DISEASE PROPHYLAXIS
     Dosage: TOTAL DAILY DOSE: 81 MG  UNIT DOSE: 81 MG
     Route: 048
  2. OCUVITE [Concomitant]

REACTIONS (4)
  - EPISTAXIS [None]
  - GLAUCOMA [None]
  - HAEMORRHAGE [None]
  - MACULAR DEGENERATION [None]
